FAERS Safety Report 8071521-8 (Version None)
Quarter: 2012Q1

REPORT INFORMATION
  Report Type: 
  Country: None (occurrence: None)
  Receive Date: 20120125
  Receipt Date: 20120118
  Transmission Date: 20120608
  Serious: Yes (Hospitalization, Disabling, Other)
  Sender: FDA-Public Use
  Company Number: CA-ABBOTT-12P-028-0894666-00

PATIENT
  Age: 29 Year
  Sex: Female
  Weight: 65.83 kg

DRUGS (1)
  1. LUPRON DEPOT [Suspect]
     Indication: PRODUCT USED FOR UNKNOWN INDICATION
     Route: 051
     Dates: start: 20110429, end: 20110429

REACTIONS (20)
  - NERVOUSNESS [None]
  - DECREASED APPETITE [None]
  - MIGRAINE [None]
  - INSOMNIA [None]
  - MUSCLE TWITCHING [None]
  - VOMITING [None]
  - CONFUSIONAL STATE [None]
  - CONSTIPATION [None]
  - BREAST TENDERNESS [None]
  - GASTROINTESTINAL DISORDER [None]
  - INFLAMMATION [None]
  - ABDOMINAL DISTENSION [None]
  - AMNESIA [None]
  - ASTHENIA [None]
  - DEPRESSION [None]
  - DIZZINESS [None]
  - LOSS OF LIBIDO [None]
  - ANXIETY [None]
  - NAUSEA [None]
  - SWELLING [None]
